FAERS Safety Report 16670317 (Version 11)
Quarter: 2020Q3

REPORT INFORMATION
  Report Type: Spontaneous
  Country: US (occurrence: US)
  Receive Date: 20190805
  Receipt Date: 20200811
  Transmission Date: 20201102
  Serious: Yes (Hospitalization)
  Sender: FDA-Public Use
  Company Number: US-ACTELION-A-NJ2019-190604

PATIENT
  Age: 70 Year
  Sex: Female
  Weight: 54.42 kg

DRUGS (8)
  1. VELETRI [Suspect]
     Active Substance: EPOPROSTENOL
     Dosage: 29 NG/KG/MIN
     Route: 042
  2. OXYGEN. [Concomitant]
     Active Substance: OXYGEN
     Dosage: 3 L, PER MIN AT REST
  3. VELETRI [Suspect]
     Active Substance: EPOPROSTENOL
     Indication: PULMONARY ARTERIAL HYPERTENSION
     Dosage: 19 NG/KG, PER MIN
     Route: 042
  4. VELETRI [Suspect]
     Active Substance: EPOPROSTENOL
     Dosage: 22 NG/KG, PER MIN
     Route: 042
  5. VELETRI [Suspect]
     Active Substance: EPOPROSTENOL
     Dosage: 19.3 NG/KG, PER MIN
     Route: 042
  6. OXYGEN. [Concomitant]
     Active Substance: OXYGEN
     Dosage: 4 L, PER MIN W/ACTIVITY
  7. OPSUMIT [Suspect]
     Active Substance: MACITENTAN
     Indication: PULMONARY ARTERIAL HYPERTENSION
     Dosage: 10 MG, QD
     Route: 048
     Dates: start: 20160202
  8. REVATIO [Concomitant]
     Active Substance: SILDENAFIL CITRATE

REACTIONS (9)
  - Pulmonary hypertension [Unknown]
  - Dizziness [Recovered/Resolved]
  - Sensitivity to weather change [Unknown]
  - Catheter site erythema [Unknown]
  - Dyspnoea exertional [Not Recovered/Not Resolved]
  - Rash [Unknown]
  - Dyspnoea [Unknown]
  - Device dislocation [Unknown]
  - Catheter site pruritus [Unknown]

NARRATIVE: CASE EVENT DATE: 20190518
